FAERS Safety Report 25750536 (Version 1)
Quarter: 2025Q3

REPORT INFORMATION
  Report Type: Spontaneous
  Country: EU (occurrence: EU)
  Receive Date: 20250902
  Receipt Date: 20250902
  Transmission Date: 20251021
  Serious: Yes (Hospitalization, Other)
  Sender: MYLAN
  Company Number: None

PATIENT
  Sex: Male

DRUGS (1)
  1. TRAMADOL [Suspect]
     Active Substance: TRAMADOL
     Indication: Analgesic therapy

REACTIONS (5)
  - Myocardial injury [Unknown]
  - Drug dependence [Unknown]
  - Withdrawal syndrome [Unknown]
  - Product prescribing issue [Unknown]
  - Product communication issue [Unknown]
